FAERS Safety Report 16855701 (Version 2)
Quarter: 2019Q3

REPORT INFORMATION
  Report Type: Spontaneous
  Country: SE (occurrence: SE)
  Receive Date: 20190926
  Receipt Date: 20190926
  Transmission Date: 20191005
  Serious: Yes (Death, Life-Threatening, Hospitalization, Other)
  Sender: FDA-Public Use
  Company Number: SE-PFIZER INC-2019401857

PATIENT
  Age: 73 Year
  Sex: Female

DRUGS (6)
  1. FUROSEMIDE. [Concomitant]
     Active Substance: FUROSEMIDE
     Indication: HYPERTENSION
     Dosage: UNK
  2. ERYTHROMYCIN. [Interacting]
     Active Substance: ERYTHROMYCIN
     Indication: LOWER RESPIRATORY TRACT INFECTION
     Dosage: UNK
  3. ACETYLSALICYLIC ACID [Concomitant]
     Active Substance: ASPIRIN
     Indication: CORONARY ARTERY DISEASE
     Dosage: UNK
  4. ESCITALOPRAM [Interacting]
     Active Substance: ESCITALOPRAM OXALATE
     Indication: DEPRESSION
     Dosage: INCREASED TO ITS CURRENT DOSE 3 MONTHS AGO
  5. ESCITALOPRAM [Interacting]
     Active Substance: ESCITALOPRAM OXALATE
     Dosage: 15 MG, UNK
  6. VENLAFAXINE HCL [Suspect]
     Active Substance: VENLAFAXINE HYDROCHLORIDE
     Indication: DEPRESSION
     Dosage: 225 MG, UNK

REACTIONS (7)
  - Drug interaction [Fatal]
  - Myocardial infarction [Fatal]
  - Myeloma cast nephropathy [Fatal]
  - Serotonin syndrome [Fatal]
  - Ventricular fibrillation [Fatal]
  - Renal failure [Unknown]
  - Cardiac arrest [Fatal]
